FAERS Safety Report 6150490-1 (Version None)
Quarter: 2009Q2

REPORT INFORMATION
  Report Type: 
  Country: None (occurrence: None)
  Receive Date: 20090409
  Receipt Date: 20090405
  Transmission Date: 20091009
  Serious: Yes (Other)
  Sender: FDA-Public Use
  Company Number: US-AVENTIS-200912885US

PATIENT
  Age: 69 Year
  Sex: Female

DRUGS (4)
  1. LANTUS [Suspect]
     Indication: TYPE 1 DIABETES MELLITUS
     Route: 058
  2. OPTICLIK (INSULIN INJECTION PEN) [Suspect]
     Indication: TYPE 1 DIABETES MELLITUS
  3. GLUCOPHAGE [Concomitant]
     Dosage: DOSE: UNK
  4. SYNTHROID [Concomitant]
     Dosage: DOSE: UNK

REACTIONS (2)
  - CATARACT [None]
  - CONDITION AGGRAVATED [None]
